FAERS Safety Report 21465056 (Version 1)
Quarter: 2022Q4

REPORT INFORMATION
  Report Type: Spontaneous
  Country: JP (occurrence: JP)
  Receive Date: 20221017
  Receipt Date: 20221017
  Transmission Date: 20230113
  Serious: Yes (Hospitalization)
  Sender: FDA-Public Use
  Company Number: JP-NOVOPROD-967451

PATIENT
  Age: 80 Year
  Sex: Female

DRUGS (2)
  1. NOVOLIN R [Suspect]
     Active Substance: INSULIN HUMAN
     Indication: Diabetes mellitus
     Route: 058
  2. NOVOLIN R [Suspect]
     Active Substance: INSULIN HUMAN
     Indication: Diabetes mellitus
     Dosage: UNK
     Route: 058

REACTIONS (1)
  - Hospitalisation [Unknown]
